FAERS Safety Report 8546561-2 (Version None)
Quarter: 2012Q3

REPORT INFORMATION
  Report Type: 
  Country: None (occurrence: None)
  Receive Date: 20120727
  Receipt Date: 20111223
  Transmission Date: 20120928
  Serious: No
  Sender: FDA-Public Use
  Company Number: US-ASTRAZENECA-2011SE78240

PATIENT
  Age: 41 Year
  Sex: Male

DRUGS (9)
  1. SEROQUEL XR [Suspect]
     Indication: ANXIETY
     Route: 048
     Dates: start: 20070101
  2. SEROQUEL XR [Suspect]
     Indication: INTERMITTENT EXPLOSIVE DISORDER
     Route: 048
     Dates: start: 20070101
  3. SEROQUEL XR [Suspect]
     Indication: SUICIDAL IDEATION
     Route: 048
     Dates: start: 20070101
  4. DIAZEPAM [Concomitant]
  5. PAROXETINE [Concomitant]
  6. TRAZODONE HYDROCHLORIDE [Concomitant]
     Indication: SLEEP DISORDER
  7. SEROQUEL XR [Suspect]
     Indication: OBSESSIVE-COMPULSIVE DISORDER
     Route: 048
     Dates: start: 20070101
  8. SEROQUEL XR [Suspect]
     Indication: BIPOLAR I DISORDER
     Route: 048
     Dates: start: 20070101
  9. PROMETHAZINE [Concomitant]
     Indication: MIGRAINE
     Dosage: 25 MG EVERYDAY OR EVERY 6 HOURS AS NEEDED
     Route: 048

REACTIONS (5)
  - ANGER [None]
  - PERSONALITY DISORDER [None]
  - DRUG EFFECT DECREASED [None]
  - DRUG PRESCRIBING ERROR [None]
  - ANXIETY [None]
